FAERS Safety Report 11243000 (Version 1)
Quarter: 2015Q3

REPORT INFORMATION
  Report Type: Spontaneous
  Country: NL (occurrence: NL)
  Receive Date: 20150707
  Receipt Date: 20150707
  Transmission Date: 20151125
  Serious: Yes (Death)
  Sender: FDA-Public Use
  Company Number: NL-TOLMAR, INC.-2015NL005965

PATIENT
  Sex: Male

DRUGS (3)
  1. ELIGARD [Suspect]
     Active Substance: LEUPROLIDE ACETATE
     Dosage: UNKCOTHER(ONCE IN EVERY 3 MONTHS)
     Route: 058
     Dates: start: 20150424
  2. ELIGARD [Suspect]
     Active Substance: LEUPROLIDE ACETATE
     Dosage: UNKCOTHER(ONCE IN EVERY 3 MONTHS)
     Route: 058
     Dates: start: 20150126
  3. ELIGARD [Suspect]
     Active Substance: LEUPROLIDE ACETATE
     Indication: PROSTATE CANCER
     Dosage: UNK, OTHER (ONCE IN EVERY 3 MONTHS)
     Route: 058
     Dates: start: 20110802

REACTIONS (1)
  - Death [Fatal]
